FAERS Safety Report 6729700-5 (Version None)
Quarter: 2010Q2

REPORT INFORMATION
  Report Type: 
  Country: None (occurrence: None)
  Receive Date: 20100512
  Receipt Date: 20100504
  Transmission Date: 20101027
  Serious: Yes (Hospitalization)
  Sender: FDA-Public Use
  Company Number: TPA2010A02608

PATIENT
  Age: 52 Year
  Sex: Female
  Weight: 69.4911 kg

DRUGS (8)
  1. PIOGLITAZONE HCL [Suspect]
     Indication: TYPE 2 DIABETES MELLITUS
     Dosage: 30 MG, 1 IN 1 D, ORAL
     Route: 048
     Dates: start: 20091103
  2. DUTOGLIPTIN (INVESTIGATIONAL DRUG) [Suspect]
     Indication: TYPE 2 DIABETES MELLITUS
  3. LIPITOR [Concomitant]
  4. ASPIRIN [Concomitant]
  5. BENADRYL [Concomitant]
  6. LISINOPRIL [Concomitant]
  7. TYLENOL (PARACETAMOL) [Concomitant]
  8. METFORMIN HCL [Concomitant]

REACTIONS (9)
  - ATELECTASIS [None]
  - BLOOD GLUCOSE ABNORMAL [None]
  - BLOOD PRESSURE DIASTOLIC INCREASED [None]
  - CHOLECYSTITIS ACUTE [None]
  - CHOLELITHIASIS [None]
  - MYOCARDIAL ISCHAEMIA [None]
  - NAUSEA [None]
  - PLEURAL EFFUSION [None]
  - VOMITING [None]
